FAERS Safety Report 6011400-0 (Version None)
Quarter: 2008Q4

REPORT INFORMATION
  Report Type: 
  Country: None (occurrence: None)
  Receive Date: 20081218
  Receipt Date: 19950626
  Transmission Date: 20090506
  Serious: Yes (Death, Other)
  Sender: FDA-Public Use
  Company Number: DE-ROCHE-47874

PATIENT
  Age: 53 Year
  Sex: Male

DRUGS (7)
  1. ZALCITABINE [Suspect]
     Indication: HIV INFECTION
     Route: 048
     Dates: start: 19940627, end: 19950603
  2. FLUCONAZOLE [Concomitant]
     Route: 048
     Dates: start: 19941010
  3. IMMUNE GLOBULIN INTRAVENOUS (HUMAN) [Concomitant]
     Route: 042
     Dates: start: 19931206
  4. ITRACONAZOL [Concomitant]
     Dates: start: 19950522
  5. PENTAMIDINE [Concomitant]
     Dates: start: 19930201
  6. ACYCLOVIR [Concomitant]
     Indication: HERPES ZOSTER
     Dates: start: 19950209, end: 19950223
  7. ACC 600 [Concomitant]
     Indication: BRONCHITIS
     Dates: start: 19941010, end: 19941024

REACTIONS (8)
  - BRONCHITIS [None]
  - DEATH [None]
  - HERPES ZOSTER [None]
  - KAPOSI'S SARCOMA [None]
  - OESOPHAGEAL CANDIDIASIS [None]
  - ORAL CANDIDIASIS [None]
  - THROMBOCYTOPENIA [None]
  - WEIGHT DECREASED [None]
